FAERS Safety Report 7760540-4 (Version None)
Quarter: 2011Q3

REPORT INFORMATION
  Report Type: 
  Country: None (occurrence: None)
  Receive Date: 20110919
  Receipt Date: 20110908
  Transmission Date: 20111222
  Serious: Yes (Hospitalization, Other)
  Sender: FDA-Public Use
  Company Number: BR-ELI_LILLY_AND_COMPANY-BR201107000704

PATIENT
  Sex: Male
  Weight: 60 kg

DRUGS (9)
  1. LACTULOSE [Concomitant]
     Indication: GASTROINTESTINAL DISORDER THERAPY
     Dosage: UNK, UNKNOWN
     Route: 065
  2. CLONAZEPAM [Concomitant]
     Indication: SLEEP DISORDER
     Dosage: UNK, QD
     Route: 065
  3. LEVEMIR [Concomitant]
     Indication: DIABETES MELLITUS
     Dosage: UNK, UNKNOWN
     Route: 065
     Dates: start: 20060101
  4. ESPIRONOLACTONA [Concomitant]
     Indication: DIURETIC THERAPY
     Dosage: UNK, UNKNOWN
     Route: 065
  5. PROPRANOLOL [Concomitant]
     Indication: PROPHYLAXIS
     Dosage: UNK, UNKNOWN
     Route: 065
  6. PAROXETINA [Concomitant]
     Indication: ANXIETY
     Dosage: UNK, UNKNOWN
     Route: 065
  7. BACLOFEN [Concomitant]
     Indication: MUSCULOSKELETAL STIFFNESS
     Dosage: UNK, BID
     Route: 065
  8. PANTOPRAZOLE [Concomitant]
     Indication: GASTROINTESTINAL DISORDER
     Dosage: 40 MG, QD
     Route: 065
  9. HUMALOG [Suspect]
     Indication: DIABETES MELLITUS
     Dosage: UNK, UNKNOWN
     Route: 058
     Dates: start: 20060101

REACTIONS (6)
  - HEPATIC NEOPLASM [None]
  - ENCEPHALOPATHY [None]
  - HAEMORRHAGE [None]
  - ONCOLOGIC COMPLICATION [None]
  - METASTASES TO CENTRAL NERVOUS SYSTEM [None]
  - HEPATIC CIRRHOSIS [None]
